FAERS Safety Report 7563482-2 (Version None)
Quarter: 2011Q2

REPORT INFORMATION
  Report Type: 
  Country: None (occurrence: None)
  Receive Date: 20110622
  Receipt Date: 20110620
  Transmission Date: 20111010
  Serious: Yes (Death, Other)
  Sender: FDA-Public Use
  Company Number: DE-PFIZER INC-2011136510

PATIENT

DRUGS (3)
  1. FENTANYL [Suspect]
     Dosage: UNK
  2. LYRICA [Suspect]
     Dosage: UNK
  3. HEROIN [Suspect]
     Dosage: UNK

REACTIONS (2)
  - DRUG ABUSE [None]
  - CIRCULATORY COLLAPSE [None]
